FAERS Safety Report 7124408-9 (Version None)
Quarter: 2010Q4

REPORT INFORMATION
  Report Type: 
  Country: None (occurrence: None)
  Receive Date: 20101126
  Receipt Date: 20101117
  Transmission Date: 20110411
  Serious: Yes (Other)
  Sender: FDA-Public Use
  Company Number: GB-BRISTOL-MYERS SQUIBB COMPANY-15405996

PATIENT
  Age: 44 Year
  Sex: Female
  Weight: 83 kg

DRUGS (7)
  1. GLUCOPHAGE [Suspect]
     Indication: DIABETES MELLITUS INADEQUATE CONTROL
     Route: 048
     Dates: end: 20100804
  2. DIAMICRON [Suspect]
     Indication: DIABETES MELLITUS INADEQUATE CONTROL
  3. LEVEMIR [Suspect]
     Indication: DIABETES MELLITUS INADEQUATE CONTROL
     Route: 058
     Dates: start: 20100804, end: 20100101
  4. NOVORAPID [Suspect]
     Indication: DIABETES MELLITUS INADEQUATE CONTROL
     Route: 058
     Dates: start: 20100804, end: 20100101
  5. VICTOZA [Suspect]
     Indication: DIABETES MELLITUS INADEQUATE CONTROL
     Dosage: 9MAR10:UNK:0.6MG UNK:4AUG10:1.2IU
     Route: 058
     Dates: start: 20100309, end: 20100804
  6. PERINDOPRIL [Concomitant]
     Route: 048
     Dates: start: 20090316, end: 20100804
  7. ROSUVASTATIN [Concomitant]
     Route: 048
     Dates: start: 20070101, end: 20100804

REACTIONS (2)
  - ABORTION SPONTANEOUS [None]
  - PREGNANCY [None]
